FAERS Safety Report 20740895 (Version 1)
Quarter: 2022Q2

REPORT INFORMATION
  Report Type: Spontaneous
  Country: IN (occurrence: IN)
  Receive Date: 20220422
  Receipt Date: 20220422
  Transmission Date: 20220721
  Serious: Yes (Death, Other)
  Sender: FDA-Public Use
  Company Number: IN-AMGEN-INDSP2022065985

PATIENT
  Age: 35 Year
  Sex: Male

DRUGS (1)
  1. XGEVA [Suspect]
     Active Substance: DENOSUMAB
     Indication: Bone giant cell tumour
     Dosage: UNK
     Route: 065

REACTIONS (6)
  - Respiratory failure [Fatal]
  - Congestive cardiomyopathy [Unknown]
  - Myotonic dystrophy [Unknown]
  - Ejection fraction decreased [Unknown]
  - Cytogenetic abnormality [Unknown]
  - Confusional state [Unknown]
